FAERS Safety Report 14104840 (Version 2)
Quarter: 2017Q4

REPORT INFORMATION
  Report Type: Report from Study
  Country: US (occurrence: US)
  Receive Date: 20171018
  Receipt Date: 20171106
  Transmission Date: 20180321
  Serious: Yes (Other)
  Sender: FDA-Public Use
  Company Number: US-ASTRAZENECA-2017SE21633

PATIENT
  Sex: Male
  Weight: 90 kg

DRUGS (1)
  1. TAGRISSO [Suspect]
     Active Substance: OSIMERTINIB
     Indication: LUNG NEOPLASM MALIGNANT
     Route: 048
     Dates: start: 20160101

REACTIONS (3)
  - Malignant neoplasm progression [Unknown]
  - Nail disorder [Unknown]
  - Constipation [Not Recovered/Not Resolved]
